FAERS Safety Report 14311905 (Version 4)
Quarter: 2018Q3

REPORT INFORMATION
  Report Type: Report from Study
  Country: US (occurrence: US)
  Receive Date: 20171221
  Receipt Date: 20180710
  Transmission Date: 20181010
  Serious: No
  Sender: FDA-Public Use
  Company Number: PHEH2017US040958

PATIENT
  Sex: Female

DRUGS (1)
  1. COSENTYX [Suspect]
     Active Substance: SECUKINUMAB
     Indication: PSORIATIC ARTHROPATHY
     Dosage: UNK
     Route: 058

REACTIONS (7)
  - Hyperreflexia [Unknown]
  - Rash [Not Recovered/Not Resolved]
  - Immune system disorder [Not Recovered/Not Resolved]
  - Arthritis [Unknown]
  - Pain in extremity [Unknown]
  - Alopecia [Not Recovered/Not Resolved]
  - Gingival pain [Unknown]
